FAERS Safety Report 7081593-5 (Version None)
Quarter: 2010Q4

REPORT INFORMATION
  Report Type: 
  Country: None (occurrence: None)
  Receive Date: 20101103
  Receipt Date: 20101025
  Transmission Date: 20110411
  Serious: No
  Sender: FDA-Public Use
  Company Number: US-ROXANE LABORATORIES, INC.-2010-RO-01419RO

PATIENT
  Sex: Female

DRUGS (5)
  1. METHADONE [Suspect]
     Indication: PAIN
     Dosage: 10 MG
     Route: 048
     Dates: start: 20101021, end: 20101022
  2. XANAX [Concomitant]
  3. SOMA [Concomitant]
  4. ZOLOFT [Concomitant]
  5. PHENOBARBITAL [Concomitant]

REACTIONS (1)
  - HEPATIC PAIN [None]
